FAERS Safety Report 4835211-4 (Version None)
Quarter: 2005Q4

REPORT INFORMATION
  Report Type: 
  Country: None (occurrence: None)
  Receive Date: 20051122
  Receipt Date: 20051117
  Transmission Date: 20060501
  Serious: Yes (Hospitalization)
  Sender: FDA-Public Use
  Company Number: NO-MERCK-0511NOR00026

PATIENT
  Age: 53 Year
  Sex: Male

DRUGS (1)
  1. VIOXX [Suspect]
     Indication: TENDONITIS
     Route: 065
     Dates: start: 20040629, end: 20040706

REACTIONS (3)
  - BRAIN NATRIURETIC PEPTIDE INCREASED [None]
  - CARDIAC FAILURE [None]
  - CONDITION AGGRAVATED [None]
